FAERS Safety Report 5382546-5 (Version None)
Quarter: 2007Q3

REPORT INFORMATION
  Report Type: 
  Country: None (occurrence: None)
  Receive Date: 20070710
  Receipt Date: 20070626
  Transmission Date: 20080115
  Serious: Yes (Other)
  Sender: FDA-Public Use
  Company Number: PHBS2007BR10935

PATIENT
  Age: 78 Year
  Sex: Female
  Weight: 45 kg

DRUGS (8)
  1. EXELON [Suspect]
     Indication: DEMENTIA ALZHEIMER'S TYPE
     Dosage: 3 MG, BID
     Route: 048
     Dates: start: 20060601
  2. COMBIRON B 12 [Suspect]
     Indication: ANAEMIA
     Dosage: 1 TAB/DAY
     Route: 065
  3. VINPOCETINE [Suspect]
     Dosage: UNK, UNK
     Dates: start: 20070501
  4. SUPRADYN /ARG/ [Suspect]
     Dosage: 1 TAB/DAY
  5. VITAMIN E [Suspect]
     Dosage: 3 TAB/DAY
  6. VITAMIN E [Suspect]
     Dosage: 1 TAB/DAY
  7. RISPERIDONE [Suspect]
     Dosage: 1 TAB/DAY
  8. SERTRALINE [Suspect]
     Indication: DEPRESSIVE SYMPTOM
     Dosage: 1 TAB/DAY

REACTIONS (17)
  - ANAEMIA [None]
  - BLOOD PRESSURE INCREASED [None]
  - CIRCADIAN RHYTHM SLEEP DISORDER [None]
  - DEMENTIA ALZHEIMER'S TYPE [None]
  - DRUG INEFFECTIVE [None]
  - DRUG INTERACTION [None]
  - FALL [None]
  - GENITOURINARY TRACT INFECTION [None]
  - INFECTION [None]
  - OEDEMA [None]
  - PLATELET COUNT DECREASED [None]
  - PLATELET COUNT INCREASED [None]
  - RENAL DISORDER [None]
  - SOMNOLENCE [None]
  - SWELLING FACE [None]
  - URINARY TRACT INFECTION [None]
  - WHITE BLOOD CELL COUNT DECREASED [None]
